FAERS Safety Report 7913913-0 (Version None)
Quarter: 2011Q4

REPORT INFORMATION
  Report Type: 
  Country: None (occurrence: None)
  Receive Date: 20111115
  Receipt Date: 20111111
  Transmission Date: 20120403
  Serious: Yes (Other)
  Sender: FDA-Public Use
  Company Number: VE-PFIZER INC-2011052811

PATIENT
  Age: 35 Year
  Sex: Female

DRUGS (7)
  1. POTASSIUM [Concomitant]
     Dosage: UNK
  2. 5-HYDROXYTRYPTOPHAN [Concomitant]
     Dosage: UNK
  3. ALPRAZOLAM [Concomitant]
     Dosage: 12 DF/DAY
     Route: 048
  4. ALPRAZOLAM [Concomitant]
     Indication: NEURALGIA
     Dosage: 0.5 MG, 3X/DAY
     Route: 048
     Dates: start: 20100101
  5. NEURONTIN [Concomitant]
     Indication: FIBROMYALGIA
     Dosage: 300 MG, 1X/DAY
     Route: 048
     Dates: start: 20100101
  6. MARIJUANA [Concomitant]
     Dosage: UNK
  7. LYRICA [Suspect]
     Indication: NEURALGIA
     Dosage: 75 MG, 3X/DAY
     Route: 048
     Dates: start: 20100101, end: 20100101

REACTIONS (19)
  - DEPRESSION [None]
  - MEMORY IMPAIRMENT [None]
  - DISORIENTATION [None]
  - SKIN INFECTION [None]
  - DYSPNOEA [None]
  - HEADACHE [None]
  - EUPHORIC MOOD [None]
  - HYPOTONIA [None]
  - RHEUMATIC FEVER [None]
  - SCAB [None]
  - EYE IRRITATION [None]
  - INSOMNIA [None]
  - PAIN IN EXTREMITY [None]
  - PYREXIA [None]
  - ARTHRALGIA [None]
  - HYPERSENSITIVITY [None]
  - PANIC ATTACK [None]
  - MUSCLE SPASMS [None]
  - MYALGIA [None]
